FAERS Safety Report 14344140 (Version 1)
Quarter: 2018Q1

REPORT INFORMATION
  Report Type: Spontaneous
  Country: US (occurrence: US)
  Receive Date: 20180102
  Receipt Date: 20180102
  Transmission Date: 20180509
  Serious: Yes (Death, Other)
  Sender: FDA-Public Use
  Company Number: US-009507513-1712USA014632

PATIENT
  Age: 52 Year
  Sex: Female

DRUGS (3)
  1. PRINIVIL [Suspect]
     Active Substance: LISINOPRIL
     Route: 048
  2. AMLODIPINE [Suspect]
     Active Substance: AMLODIPINE BESYLATE
  3. ATORVASTATIN [Suspect]
     Active Substance: ATORVASTATIN

REACTIONS (1)
  - Death [Fatal]
